FAERS Safety Report 4766666-1 (Version None)
Quarter: 2005Q3

REPORT INFORMATION
  Report Type: 
  Country: None (occurrence: None)
  Receive Date: 20050908
  Receipt Date: 20050829
  Transmission Date: 20060218
  Serious: Yes (Hospitalization, Other)
  Sender: FDA-Public Use
  Company Number: 2005112413

PATIENT
  Sex: Female
  Weight: 54.4316 kg

DRUGS (2)
  1. DILANTIN [Suspect]
     Indication: COMPLEX PARTIAL SEIZURES
     Dosage: 200 MG (1 IN 1 D), ORAL
     Route: 048
     Dates: start: 20050604, end: 20050709
  2. DILANTIN [Suspect]
     Indication: CONVULSION
     Dosage: 200 MG (1 IN 1 D), ORAL
     Route: 048
     Dates: start: 20050604, end: 20050709

REACTIONS (8)
  - COUGH [None]
  - GLOMERULONEPHRITIS [None]
  - NAUSEA [None]
  - RASH [None]
  - RENAL FAILURE ACUTE [None]
  - SWELLING [None]
  - VASCULITIS [None]
  - VIRAL INFECTION [None]
